FAERS Safety Report 11604188 (Version 1)
Quarter: 2015Q4

REPORT INFORMATION
  Report Type: Spontaneous
  Country: None (occurrence: None)
  Receive Date: 20151006
  Receipt Date: 20151006
  Transmission Date: 20160304
  Serious: Yes (Other)
  Sender: FDA-Public Use
  Company Number: None

PATIENT
  Age: 35 Year
  Sex: Female
  Weight: 68.04 kg

DRUGS (4)
  1. GENERIC CLARITIN [Concomitant]
  2. SYNTHROID [Suspect]
     Active Substance: LEVOTHYROXINE SODIUM
     Indication: HYPOTHYROIDISM
     Dosage: 75 MCG - 1 PILL ONCE DAILY TAKEN BY MOUTH
     Route: 048
     Dates: start: 20150928, end: 20151004
  3. SYNTHROID [Concomitant]
     Active Substance: LEVOTHYROXINE SODIUM
  4. JUNEL BIRTH CONTROL [Concomitant]

REACTIONS (7)
  - Insomnia [None]
  - Heart rate increased [None]
  - Nervousness [None]
  - Irritability [None]
  - Product substitution issue [None]
  - Headache [None]
  - Dizziness [None]

NARRATIVE: CASE EVENT DATE: 20151005
